FAERS Safety Report 6771086-4 (Version None)
Quarter: 2010Q2

REPORT INFORMATION
  Report Type: 
  Country: None (occurrence: None)
  Receive Date: 20100616
  Receipt Date: 20100609
  Transmission Date: 20101027
  Serious: Yes (Other)
  Sender: FDA-Public Use
  Company Number: US-JNJFOC-20100603350

PATIENT
  Sex: Female
  Weight: 86.18 kg

DRUGS (10)
  1. FENTANYL [Suspect]
     Indication: BACK PAIN
     Dosage: 100UG/HR X 3 PATCHES
     Route: 062
  2. DOVONEX [Suspect]
     Indication: PSORIASIS
     Route: 061
  3. ACYCLOVIR [Concomitant]
     Indication: HERPES ZOSTER
     Route: 048
  4. GABAPENTIN [Concomitant]
     Indication: NEURALGIA
     Route: 048
  5. SKELAXIN [Concomitant]
     Indication: MUSCLE SPASMS
     Route: 048
  6. LEVOTHYROXINE SODIUM [Concomitant]
     Indication: THYROID DISORDER
     Route: 048
  7. ZOLOFT [Concomitant]
     Indication: DEPRESSION
     Route: 048
  8. CLOBETASOL PROPIONATE [Concomitant]
     Indication: PSORIASIS
     Route: 061
  9. DILAUDID [Concomitant]
     Indication: BREAKTHROUGH PAIN
     Route: 048
  10. CLOBEX [Concomitant]
     Indication: PSORIASIS
     Route: 061

REACTIONS (3)
  - DRUG ADMINISTERED AT INAPPROPRIATE SITE [None]
  - MUSCLE SPASMS [None]
  - PSORIASIS [None]
